FAERS Safety Report 13370637 (Version 1)
Quarter: 2017Q1

REPORT INFORMATION
  Report Type: Spontaneous
  Country: US (occurrence: US)
  Receive Date: 20170324
  Receipt Date: 20170324
  Transmission Date: 20170429
  Serious: No
  Sender: FDA-Public Use
  Company Number: US-ROCHE-1192705

PATIENT
  Sex: Female

DRUGS (5)
  1. XOLAIR [Suspect]
     Active Substance: OMALIZUMAB
     Indication: PRODUCT USED FOR UNKNOWN INDICATION
     Route: 065
     Dates: start: 200502, end: 200509
  2. PREDNISOLONE. [Concomitant]
     Active Substance: PREDNISOLONE
  3. FLOVENT [Concomitant]
     Active Substance: FLUTICASONE PROPIONATE
  4. FORADIL [Concomitant]
     Active Substance: FORMOTEROL FUMARATE
  5. TILADE [Concomitant]
     Active Substance: NEDOCROMIL SODIUM

REACTIONS (4)
  - Cough [Unknown]
  - Eczema [Unknown]
  - Insomnia [Unknown]
  - Wheezing [Unknown]
